FAERS Safety Report 16596804 (Version 2)
Quarter: 2025Q4

REPORT INFORMATION
  Report Type: Spontaneous
  Country: IL (occurrence: IL)
  Receive Date: 20190719
  Receipt Date: 20251112
  Transmission Date: 20260117
  Serious: Yes (Other)
  Sender: MERCK SHARP & DOHME LLC
  Company Number: None

PATIENT

DRUGS (1)
  1. PEMBROLIZUMAB [Suspect]
     Active Substance: PEMBROLIZUMAB
     Dosage: DOSE DESCRIPTION : UNK (STRENGTH: 100 MILLIGRAM/ 4 MILLILITER)?CONCENTRATION: 100/4 DOSAGE FORM

REACTIONS (1)
  - Tuberculosis [Unknown]
